FAERS Safety Report 20426399 (Version 1)
Quarter: 2022Q1

REPORT INFORMATION
  Report Type: Report from Study
  Country: US (occurrence: US)
  Receive Date: 20220204
  Receipt Date: 20220204
  Transmission Date: 20220423
  Serious: No
  Sender: FDA-Public Use
  Company Number: US-EXELIXIS-CABO-21042835

PATIENT
  Sex: Male

DRUGS (24)
  1. CABOMETYX [Suspect]
     Active Substance: CABOZANTINIB S-MALATE
     Indication: Renal cancer
     Dosage: 60 MG, QD
     Route: 048
     Dates: start: 20201110
  2. CABOMETYX [Suspect]
     Active Substance: CABOZANTINIB S-MALATE
     Dosage: 40 MG, QD
     Route: 048
  3. AMLODIPINE [Concomitant]
     Active Substance: AMLODIPINE BESYLATE
  4. BACLOFEN [Concomitant]
     Active Substance: BACLOFEN
  5. FERROUS SULFATE [Concomitant]
     Active Substance: FERROUS SULFATE
  6. CEPHALEXIN [Concomitant]
     Active Substance: CEPHALEXIN
  7. CIPROFLOXACIN [Concomitant]
     Active Substance: CIPROFLOXACIN
  8. CLOBETASOL [Concomitant]
     Active Substance: CLOBETASOL
  9. FINASTERIDE [Concomitant]
     Active Substance: FINASTERIDE
  10. FLUOCINONIDE [Concomitant]
     Active Substance: FLUOCINONIDE
  11. FOLIC ACID [Concomitant]
     Active Substance: FOLIC ACID
  12. GABAPENTIN [Concomitant]
     Active Substance: GABAPENTIN
  13. GENTAMICIN [Concomitant]
     Active Substance: GENTAMICIN
  14. LEVOTHYROXINE [Concomitant]
     Active Substance: LEVOTHYROXINE
  15. LOPERAMIDE [Concomitant]
     Active Substance: LOPERAMIDE
  16. LOSARTAN POTASSIUM [Concomitant]
     Active Substance: LOSARTAN POTASSIUM
  17. OXYBUTYNIN CHLORIDE [Concomitant]
     Active Substance: OXYBUTYNIN CHLORIDE
  18. OXYCODONE [Concomitant]
     Active Substance: OXYCODONE
  19. OYSTER SHELL [Concomitant]
     Active Substance: OSTREA EDULIS SHELL
  20. POTASSIUM CHLORIDE [Concomitant]
     Active Substance: POTASSIUM CHLORIDE
  21. PREDNISOLONE [Concomitant]
     Active Substance: PREDNISOLONE
  22. TAMSULOSIN [Concomitant]
     Active Substance: TAMSULOSIN
  23. TIMOLOL MALEATE [Concomitant]
     Active Substance: TIMOLOL MALEATE
  24. BRIMONIDINE [Concomitant]
     Active Substance: BRIMONIDINE TARTRATE

REACTIONS (2)
  - Pain in extremity [Unknown]
  - Product dose omission issue [Unknown]
